FAERS Safety Report 8365781-3 (Version None)
Quarter: 2012Q2

REPORT INFORMATION
  Report Type: 
  Country: None (occurrence: None)
  Receive Date: 20120517
  Receipt Date: 20120510
  Transmission Date: 20120825
  Serious: Yes (Other)
  Sender: FDA-Public Use
  Company Number: US-AMGEN-USASP2012030136

PATIENT
  Age: 67 Year
  Sex: Female

DRUGS (8)
  1. VICODIN [Concomitant]
  2. DIURETICS [Concomitant]
  3. OXYCODONE HCL [Concomitant]
  4. PROLIA [Suspect]
     Indication: OSTEOPOROSIS POSTMENOPAUSAL
     Dosage: 60 MG, Q6MO
     Dates: start: 20110801
  5. ANTIHISTAMINES [Concomitant]
  6. ANTIHYPERTENSIVES [Concomitant]
  7. CELEBREX [Concomitant]
  8. VITAMINS                           /00067501/ [Concomitant]

REACTIONS (3)
  - ACTIVITIES OF DAILY LIVING IMPAIRED [None]
  - BLOOD PRESSURE INCREASED [None]
  - BACK PAIN [None]
